FAERS Safety Report 4699022-5 (Version None)
Quarter: 2005Q2

REPORT INFORMATION
  Report Type: 
  Country: None (occurrence: None)
  Receive Date: 20050624
  Receipt Date: 20050617
  Transmission Date: 20051028
  Serious: Yes (Hospitalization)
  Sender: FDA-Public Use
  Company Number: PHEH2005US06897

PATIENT
  Age: 65 Year
  Sex: Female

DRUGS (2)
  1. DIOVAN [Suspect]
     Indication: HYPERTENSION
     Dosage: 160 MG, QD
     Route: 048
     Dates: start: 19950101
  2. VITAMIN E [Concomitant]

REACTIONS (3)
  - NEPHROLITHIASIS [None]
  - RENAL STONE REMOVAL [None]
  - STENT PLACEMENT [None]
